FAERS Safety Report 25979142 (Version 1)
Quarter: 2025Q4

REPORT INFORMATION
  Report Type: Spontaneous
  Country: GB (occurrence: GB)
  Receive Date: 20251030
  Receipt Date: 20251030
  Transmission Date: 20260118
  Serious: Yes (Other)
  Sender: ROCHE
  Company Number: None

PATIENT
  Age: 19 Month
  Sex: Female

DRUGS (30)
  1. RITUXIMAB [Suspect]
     Active Substance: RITUXIMAB
     Indication: Haemophagocytic lymphohistiocytosis
     Dosage: 4 TIMES
     Route: 065
  2. RITUXIMAB [Suspect]
     Active Substance: RITUXIMAB
     Dosage: 4 TIMES
     Route: 065
  3. CYCLOSPORINE [Suspect]
     Active Substance: CYCLOSPORINE
     Indication: Haemophagocytic lymphohistiocytosis
     Dosage: HIGH DOSE, TWICE A DAY (BD)
     Route: 048
  4. CYCLOSPORINE [Suspect]
     Active Substance: CYCLOSPORINE
     Route: 048
  5. PREDNISOLONE [Suspect]
     Active Substance: PREDNISOLONE
     Indication: Haemophagocytic lymphohistiocytosis
     Route: 065
     Dates: start: 20250520
  6. PREDNISOLONE [Suspect]
     Active Substance: PREDNISOLONE
     Route: 065
     Dates: start: 20250521
  7. PREDNISOLONE [Suspect]
     Active Substance: PREDNISOLONE
     Route: 065
  8. ETOPOSIDE [Suspect]
     Active Substance: ETOPOSIDE
     Indication: Haemophagocytic lymphohistiocytosis
     Dosage: INITIALLY TWICE A WEEK X 4 DOSES, THEN EVERY 2 WEEKS
     Route: 042
  9. ETOPOSIDE [Suspect]
     Active Substance: ETOPOSIDE
     Dosage: INITIALLY TWICE A WEEK X 4 DOSES, THEN EVERY 2 WEEKS
     Route: 042
     Dates: start: 20250613
  10. ETOPOSIDE [Suspect]
     Active Substance: ETOPOSIDE
     Dosage: INITIALLY TWICE A WEEK X 4 DOSES, THEN EVERY 2 WEEKS
     Route: 042
     Dates: start: 20250617
  11. ETOPOSIDE [Suspect]
     Active Substance: ETOPOSIDE
     Dosage: INITIALLY TWICE A WEEK X 4 DOSES, THEN EVERY 2 WEEKS
     Route: 042
     Dates: start: 20250629
  12. ETOPOSIDE [Suspect]
     Active Substance: ETOPOSIDE
     Dosage: INITIALLY TWICE A WEEK X 4 DOSES, THEN EVERY 2 WEEKS
     Route: 042
     Dates: start: 20250719
  13. ETOPOSIDE [Suspect]
     Active Substance: ETOPOSIDE
     Dosage: INITIALLY TWICE A WEEK X 4 DOSES, THEN EVERY 2 WEEKS
     Route: 042
     Dates: start: 20250609
  14. DEXAMETHASONE [Suspect]
     Active Substance: DEXAMETHASONE
     Indication: Haemophagocytic lymphohistiocytosis
     Dosage: WEANED TO 5MG/M2 DUE TO RAISING ADV
     Route: 065
     Dates: start: 20250529, end: 20250619
  15. DEXAMETHASONE [Suspect]
     Active Substance: DEXAMETHASONE
     Dosage: 10MG/M2 (DOSE SPLIT INTO TWICE A DAY DOSING)
     Route: 048
     Dates: end: 20250525
  16. DEXAMETHASONE [Suspect]
     Active Substance: DEXAMETHASONE
     Dosage: BACK TO 10 MG/M2 DUE TO RETURN OF FEVERS
     Route: 065
     Dates: start: 20250624
  17. DEXAMETHASONE [Suspect]
     Active Substance: DEXAMETHASONE
     Dosage: DOWN TO 5MG/M2 IN VIEW OF RISE IN EBV/ADV
     Route: 048
     Dates: start: 20250630
  18. KINERET [Suspect]
     Active Substance: ANAKINRA
     Indication: Haemophagocytic lymphohistiocytosis
     Dosage: 1 MONTH OF TREATMENT AT 10MG/KG/DAY
     Route: 058
     Dates: start: 20250516, end: 20250610
  19. GAMIFANT [Suspect]
     Active Substance: EMAPALUMAB-LZSG
     Indication: Haemophagocytic lymphohistiocytosis
     Route: 065
  20. METHYLPREDNISOLONE [Suspect]
     Active Substance: METHYLPREDNISOLONE
     Indication: Haemophagocytic lymphohistiocytosis
     Dosage: PULSE DOSES
     Route: 065
     Dates: start: 20250516
  21. METHYLPREDNISOLONE [Suspect]
     Active Substance: METHYLPREDNISOLONE
     Dosage: PULSE DOSES
     Route: 065
     Dates: start: 20250517
  22. METHYLPREDNISOLONE [Suspect]
     Active Substance: METHYLPREDNISOLONE
     Dosage: PULSE DOSES
     Route: 065
     Dates: start: 20250526
  23. METHYLPREDNISOLONE [Suspect]
     Active Substance: METHYLPREDNISOLONE
     Dosage: PULSE DOSES
     Route: 065
     Dates: start: 20250527
  24. METHYLPREDNISOLONE [Suspect]
     Active Substance: METHYLPREDNISOLONE
     Dosage: PULSE DOSES
     Route: 065
     Dates: start: 20250528
  25. METHYLPREDNISOLONE [Suspect]
     Active Substance: METHYLPREDNISOLONE
     Dosage: PULSE DOSES
     Route: 065
     Dates: start: 20250515
  26. AMBISOME [Concomitant]
     Active Substance: AMPHOTERICIN B
     Indication: Pyrexia
     Dosage: 1 MG/KG/DAY
     Route: 065
  27. AMBISOME [Concomitant]
     Active Substance: AMPHOTERICIN B
     Dosage: 3 MG/KG/DAY
     Route: 065
  28. MEROPENEM [Concomitant]
     Active Substance: MEROPENEM
     Indication: Pyrexia
     Route: 065
  29. MEROPENEM [Concomitant]
     Active Substance: MEROPENEM
     Route: 065
  30. MEROPENEM [Concomitant]
     Active Substance: MEROPENEM
     Route: 065

REACTIONS (4)
  - Adenovirus infection [Unknown]
  - Epstein-Barr virus infection [Recovering/Resolving]
  - Haemophagocytic lymphohistiocytosis [Recovering/Resolving]
  - Condition aggravated [Recovering/Resolving]

NARRATIVE: CASE EVENT DATE: 20250624
